FAERS Safety Report 5603795-4 (Version None)
Quarter: 2008Q1

REPORT INFORMATION
  Report Type: 
  Country: None (occurrence: None)
  Receive Date: 20080122
  Receipt Date: 20080107
  Transmission Date: 20080703
  Serious: Yes (Hospitalization, Other)
  Sender: FDA-Public Use
  Company Number: TOP-13

PATIENT
  Sex: Male
  Weight: 108 kg

DRUGS (3)
  1. ZINECARD [Suspect]
     Indication: EXTRAVASATION
     Dosage: 2000 MG ONCE IV
     Route: 042
     Dates: start: 20071203, end: 20071203
  2. TOTECT [Suspect]
     Indication: EXTRAVASATION
     Dosage: 2000 MG ONCE IV
     Route: 042
     Dates: start: 20071204, end: 20071204
  3. TOTECT [Suspect]
     Indication: EXTRAVASATION
     Dosage: 1000 MG ONCE IV
     Route: 042
     Dates: start: 20071205, end: 20071205

REACTIONS (2)
  - CATHETER SITE ERYTHEMA [None]
  - DEHYDRATION [None]
